FAERS Safety Report 8848278 (Version 1)
Quarter: 2012Q4

REPORT INFORMATION
  Report Type: Report from Study
  Country: BR (occurrence: BR)
  Receive Date: 20121018
  Receipt Date: 20121018
  Transmission Date: 20130627
  Serious: Yes (Other)
  Sender: FDA-Public Use
  Company Number: BR-ROCHE-1146052

PATIENT
  Age: 60 Year
  Sex: Female
  Weight: 70 kg

DRUGS (12)
  1. BEVACIZUMAB [Suspect]
     Indication: COLORECTAL CANCER
     Route: 042
     Dates: start: 20111206, end: 20120330
  2. OXALIPLATIN [Concomitant]
     Indication: COLORECTAL CANCER
     Route: 065
     Dates: start: 20111206, end: 20120330
  3. LEUCOVORIN [Concomitant]
     Indication: COLORECTAL CANCER
     Route: 065
     Dates: start: 20111206, end: 20120330
  4. LEUCOVORIN [Concomitant]
     Route: 065
  5. LEUCOVORIN [Concomitant]
     Route: 065
  6. 5-FU [Concomitant]
     Indication: COLORECTAL CANCER
     Route: 065
     Dates: start: 20111206, end: 20120330
  7. 5-FU [Concomitant]
     Route: 065
     Dates: start: 20111206, end: 20120330
  8. 5-FU [Concomitant]
     Route: 065
  9. 5-FU [Concomitant]
     Route: 065
  10. IRINOTECAN [Concomitant]
     Route: 065
  11. IRINOTECAN [Concomitant]
     Route: 065
  12. IRINOTECAN [Concomitant]
     Route: 065
     Dates: start: 20120615, end: 20121001

REACTIONS (1)
  - Disease progression [Unknown]
